FAERS Safety Report 9657623 (Version 2)
Quarter: 2014Q2

REPORT INFORMATION
  Report Type: Spontaneous
  Country: US (occurrence: US)
  Receive Date: 20131030
  Receipt Date: 20140417
  Transmission Date: 20141212
  Serious: Yes (Disabling, Other)
  Sender: FDA-Public Use
  Company Number: US-009507513-1310USA012504

PATIENT
  Sex: Female

DRUGS (4)
  1. FOSAMAX [Suspect]
     Indication: OSTEOPOROSIS
     Dosage: 70 MG, UNK
     Route: 048
     Dates: start: 200401
  2. ALENDRONATE SODIUM [Suspect]
     Indication: OSTEOPOROSIS
  3. BONIVA [Suspect]
     Indication: OSTEOPOROSIS
     Dosage: 150 MG, UNK
     Route: 048
     Dates: start: 20070723, end: 200904
  4. ACTONEL [Suspect]
     Indication: OSTEOPOROSIS
     Dosage: 150 MG, UNK
     Dates: start: 201001, end: 201110

REACTIONS (16)
  - Bone debridement [Unknown]
  - Sequestrectomy [Unknown]
  - Osteonecrosis of jaw [Not Recovered/Not Resolved]
  - Depression [Not Recovered/Not Resolved]
  - Anxiety [Not Recovered/Not Resolved]
  - Device failure [Unknown]
  - Dental implantation [Unknown]
  - Arthritis [Unknown]
  - Mitral valve prolapse [Unknown]
  - Hypertension [Unknown]
  - Oral cavity fistula [Unknown]
  - Tooth infection [Unknown]
  - Intervertebral disc protrusion [Unknown]
  - Tonsillectomy [Unknown]
  - Appendicectomy [Unknown]
  - Osteomyelitis [Unknown]
